FAERS Safety Report 8007444-X (Version None)
Quarter: 2011Q4

REPORT INFORMATION
  Report Type: 
  Country: None (occurrence: None)
  Receive Date: 20111227
  Receipt Date: 20111221
  Transmission Date: 20120403
  Serious: Yes (Hospitalization, Disabling, Other)
  Sender: FDA-Public Use
  Company Number: US-PFIZER INC-2010151218

PATIENT
  Sex: Female
  Weight: 74.83 kg

DRUGS (4)
  1. SOMAVERT [Suspect]
     Indication: ACROMEGALY
     Dosage: 10 MG, DAILY
     Route: 058
     Dates: start: 20101110, end: 20110113
  2. ZOLOFT [Concomitant]
     Indication: ANXIETY
  3. ZOLOFT [Concomitant]
     Indication: DEPRESSION
     Dosage: 100 MG, 1X/DAY
  4. IRON [Suspect]
     Dosage: UNK

REACTIONS (16)
  - WEIGHT INCREASED [None]
  - YELLOW SKIN [None]
  - AMMONIA INCREASED [None]
  - TREMOR [None]
  - PAIN [None]
  - INJECTION SITE ERYTHEMA [None]
  - HYPERSENSITIVITY [None]
  - HEPATIC ENZYME INCREASED [None]
  - MEMORY IMPAIRMENT [None]
  - BLOOD GROWTH HORMONE INCREASED [None]
  - INJECTION SITE PRURITUS [None]
  - NAUSEA [None]
  - HEPATITIS [None]
  - CHROMATURIA [None]
  - BACK PAIN [None]
  - HAEMOCHROMATOSIS [None]
